FAERS Safety Report 9728940 (Version 3)
Quarter: 2014Q1

REPORT INFORMATION
  Report Type: Spontaneous
  Country: US (occurrence: US)
  Receive Date: 20131204
  Receipt Date: 20140114
  Transmission Date: 20141002
  Serious: Yes (Other)
  Sender: FDA-Public Use
  Company Number: US-ROCHE-1312973

PATIENT
  Age: 43 Year
  Sex: Female
  Weight: 75.82 kg

DRUGS (10)
  1. XOLAIR [Suspect]
     Indication: ASTHMA
     Route: 058
     Dates: start: 20080809
  2. XOLAIR [Suspect]
     Route: 058
  3. XOLAIR [Suspect]
     Route: 058
     Dates: start: 20080909, end: 20131031
  4. ADVAIR [Concomitant]
     Indication: ASTHMA
     Dosage: 250/50
     Route: 055
     Dates: start: 200804
  5. SINGULAIR [Concomitant]
     Indication: ASTHMA
     Route: 048
     Dates: start: 200804
  6. SINGULAIR [Concomitant]
     Indication: RHINITIS ALLERGIC
  7. XYZAL [Concomitant]
     Indication: RHINITIS ALLERGIC
     Route: 048
     Dates: start: 2012
  8. SYNTHROID [Concomitant]
  9. METFORMIN [Concomitant]
  10. ALBUTEROL [Concomitant]

REACTIONS (5)
  - Urticaria [Recovered/Resolved]
  - Local reaction [Recovered/Resolved]
  - Cough [Recovered/Resolved]
  - Dysphonia [Recovered/Resolved]
  - Weight fluctuation [Unknown]
